FAERS Safety Report 7543754-8 (Version None)
Quarter: 2011Q2

REPORT INFORMATION
  Report Type: 
  Country: None (occurrence: None)
  Receive Date: 20110613
  Receipt Date: 20040705
  Transmission Date: 20111010
  Serious: Yes (Hospitalization)
  Sender: FDA-Public Use
  Company Number: PHHO2004JP07225

PATIENT
  Sex: Male

DRUGS (4)
  1. DIOVAN [Suspect]
     Indication: HYPERTENSION
     Dosage: 40 MG, QD
     Route: 048
     Dates: start: 20030501
  2. NORVASC [Concomitant]
     Indication: HYPERTENSION
     Dates: start: 20021003
  3. DETANTOL [Concomitant]
     Indication: HYPERTENSION
     Dates: start: 20031106
  4. DIOVAN [Suspect]
     Dosage: 80 MG, QD
     Route: 048
     Dates: start: 20030703

REACTIONS (2)
  - CEREBRAL INFARCTION [None]
  - MONOPARESIS [None]
